FAERS Safety Report 10524679 (Version 3)
Quarter: 2014Q4

REPORT INFORMATION
  Report Type: Spontaneous
  Country: CA (occurrence: CA)
  Receive Date: 20141017
  Receipt Date: 20141020
  Transmission Date: 20150528
  Serious: Yes (Hospitalization)
  Sender: FDA-Public Use
  Company Number: CA-SA-2014SA135995

PATIENT
  Age: 81 Year
  Sex: Female

DRUGS (14)
  1. LORAZEPAM. [Concomitant]
     Active Substance: LORAZEPAM
     Dosage: FREQUENCY:QHS
     Route: 048
  2. NITROGLYCERINE [Concomitant]
     Active Substance: NITROGLYCERIN
  3. FERRLECIT [Suspect]
     Active Substance: SODIUM FERRIC GLUCONATE COMPLEX
     Indication: ANAEMIA
     Dosage: DOSE: 125 MG INFUSED OVER 1 HOUR IN NS
     Route: 042
     Dates: start: 20140909, end: 20140912
  4. AMLODIPINE [Concomitant]
     Active Substance: AMLODIPINE BESYLATE
     Route: 048
  5. METOPROLOL [Concomitant]
     Active Substance: METOPROLOL
  6. DOCUSATE SODIUM. [Concomitant]
     Active Substance: DOCUSATE SODIUM
     Route: 048
  7. CALCIUM CARBONATE. [Concomitant]
     Active Substance: CALCIUM CARBONATE
     Route: 048
  8. EPREX [Concomitant]
     Active Substance: ERYTHROPOIETIN
     Dosage: DOSE:2000 UNIT(S)
     Route: 042
  9. PYRIDOXINE HYDROCHLORIDE. [Concomitant]
     Active Substance: PYRIDOXINE HYDROCHLORIDE
     Route: 048
  10. RAMIPRIL. [Concomitant]
     Active Substance: RAMIPRIL
  11. ZOXAN [Concomitant]
     Active Substance: DOXAZOSIN MESYLATE
     Dosage: FREQUENCY:QHS
     Route: 048
  12. FERRLECIT [Suspect]
     Active Substance: SODIUM FERRIC GLUCONATE COMPLEX
     Indication: MINERAL SUPPLEMENTATION
     Dosage: DOSE: 125 MG INFUSED OVER 1 HOUR IN NS
     Route: 042
     Dates: start: 20140909, end: 20140912
  13. MIRTAZAPINE. [Concomitant]
     Active Substance: MIRTAZAPINE
     Dosage: FREQUENCY:QHS
     Route: 048
  14. ROSUVASTATIN [Concomitant]
     Active Substance: ROSUVASTATIN

REACTIONS (6)
  - Chest pain [Unknown]
  - Hypotension [Unknown]
  - Malaise [Unknown]
  - Diarrhoea [Unknown]
  - Abdominal discomfort [Unknown]
  - Loss of consciousness [Unknown]

NARRATIVE: CASE EVENT DATE: 201408
